FAERS Safety Report 4844036-5 (Version None)
Quarter: 2005Q4

REPORT INFORMATION
  Report Type: 
  Country: None (occurrence: None)
  Receive Date: 20051202
  Receipt Date: 20051004
  Transmission Date: 20060501
  Serious: Yes (Hospitalization, Disabling)
  Sender: FDA-Public Use
  Company Number: US-MERCK-0510USA03011

PATIENT
  Age: 59 Year
  Sex: Male
  Weight: 98 kg

DRUGS (12)
  1. ZOCOR [Concomitant]
     Route: 065
  2. METOPROLOL [Concomitant]
     Route: 065
  3. PLAVIX [Concomitant]
     Route: 065
  4. ASPIRIN [Concomitant]
     Route: 065
  5. VIOXX [Suspect]
     Indication: ARTHRITIS
     Route: 048
     Dates: start: 20010101
  6. VIOXX [Suspect]
     Route: 048
     Dates: start: 20010101, end: 20030101
  7. MECLIZINE [Concomitant]
     Route: 065
  8. PROTONIX [Concomitant]
     Route: 065
  9. DIOVAN [Concomitant]
     Route: 065
  10. PAXIL [Concomitant]
     Route: 065
  11. ALPRAZOLAM [Concomitant]
     Route: 065
  12. NITROGLYCERIN [Concomitant]
     Route: 065

REACTIONS (8)
  - ANXIETY [None]
  - BENIGN COLONIC NEOPLASM [None]
  - CARDIAC DISORDER [None]
  - CHEST PAIN [None]
  - DEPRESSION [None]
  - MYOCARDIAL INFARCTION [None]
  - NERVOUSNESS [None]
  - PAIN IN EXTREMITY [None]
